FAERS Safety Report 17758062 (Version 2)
Quarter: 2020Q3

REPORT INFORMATION
  Report Type: Spontaneous
  Country: JP (occurrence: JP)
  Receive Date: 20200507
  Receipt Date: 20200706
  Transmission Date: 20201102
  Serious: Yes (Hospitalization)
  Sender: FDA-Public Use
  Company Number: JP-ELI_LILLY_AND_COMPANY-JP202004011375

PATIENT
  Age: 9 Year
  Sex: Female
  Weight: 25.8 kg

DRUGS (39)
  1. UPTRAVI [Suspect]
     Active Substance: SELEXIPAG
     Dosage: 0.4 MG, BID
     Route: 048
     Dates: start: 20170529, end: 20170604
  2. UPTRAVI [Suspect]
     Active Substance: SELEXIPAG
     Dosage: 0.75 MG, BID
     Route: 048
     Dates: start: 20180111, end: 20180207
  3. OPSUMIT [Suspect]
     Active Substance: MACITENTAN
     Dosage: 5.2 MG, DAILY
     Route: 048
     Dates: start: 20170921
  4. ADCIRCA [Suspect]
     Active Substance: TADALAFIL
     Indication: PULMONARY ARTERIAL HYPERTENSION
     Dosage: 24 MG, DAILY
     Route: 065
     Dates: start: 20161117, end: 20170628
  5. ADCIRCA [Suspect]
     Active Substance: TADALAFIL
     Dosage: 25 MG, DAILY
     Route: 065
     Dates: start: 20170629, end: 20170920
  6. UPTRAVI [Suspect]
     Active Substance: SELEXIPAG
     Dosage: 0.275 MG, BID
     Route: 048
     Dates: start: 20170522, end: 20170528
  7. UPTRAVI [Suspect]
     Active Substance: SELEXIPAG
     Dosage: 0.6 MG, BID
     Route: 048
     Dates: start: 20170612, end: 20170618
  8. UPTRAVI [Suspect]
     Active Substance: SELEXIPAG
     Dosage: 0.85 MG, BID
     Route: 048
     Dates: start: 20180809
  9. UPTRAVI [Suspect]
     Active Substance: SELEXIPAG
     Dosage: 0.85 MG, BID
     Route: 048
     Dates: start: 20190315
  10. OPSUMIT [Suspect]
     Active Substance: MACITENTAN
     Dosage: 4.5 MG, DAILY
     Route: 048
     Dates: start: 20170417, end: 20170607
  11. EPOPROSTENOL. [Suspect]
     Active Substance: EPOPROSTENOL
     Dosage: 4 UG, DAILY
     Route: 042
     Dates: start: 20180704, end: 20180704
  12. UPTRAVI [Suspect]
     Active Substance: SELEXIPAG
     Indication: PULMONARY ARTERIAL HYPERTENSION
     Dosage: 0.02 MG, BID
     Route: 048
     Dates: start: 20170417, end: 20170423
  13. UPTRAVI [Suspect]
     Active Substance: SELEXIPAG
     Dosage: 0.65 MG, BID
     Route: 048
     Dates: start: 20170620, end: 20170712
  14. UPTRAVI [Suspect]
     Active Substance: SELEXIPAG
     Dosage: 0.725 MG, BID
     Route: 048
     Dates: start: 20171005, end: 20171018
  15. UPTRAVI [Suspect]
     Active Substance: SELEXIPAG
     Dosage: 0.8 MG, BID
     Route: 048
     Dates: start: 20180208, end: 20180404
  16. OPSUMIT [Suspect]
     Active Substance: MACITENTAN
     Dosage: 4 MG, DAILY
     Route: 048
     Dates: start: 20170410
  17. EPOPROSTENOL. [Suspect]
     Active Substance: EPOPROSTENOL
     Indication: PULMONARY ARTERIAL HYPERTENSION
     Dosage: 4 UG, DAILY
     Route: 042
     Dates: start: 20171211, end: 20171211
  18. FERROMIA [Concomitant]
     Active Substance: SODIUM FERROUS CITRATE
     Indication: IRON DEFICIENCY ANAEMIA
     Dosage: 80 MG, UNKNOWN
     Route: 065
     Dates: start: 20180208
  19. UPTRAVI [Suspect]
     Active Substance: SELEXIPAG
     Dosage: 0.7 MG, BID
     Route: 048
     Dates: start: 20170619, end: 20170619
  20. OPSUMIT [Suspect]
     Active Substance: MACITENTAN
     Dosage: 6.2 MG, DAILY
     Route: 048
  21. UPTRAVI [Suspect]
     Active Substance: SELEXIPAG
     Dosage: 0.04 MG, BID
     Route: 048
     Dates: start: 20170424, end: 20170430
  22. UPTRAVI [Suspect]
     Active Substance: SELEXIPAG
     Dosage: 0.08 MG, BID
     Route: 048
     Dates: start: 20170501, end: 20170507
  23. UPTRAVI [Suspect]
     Active Substance: SELEXIPAG
     Dosage: 0.5 MG, BID
     Route: 048
     Dates: start: 20170605, end: 20170611
  24. UPTRAVI [Suspect]
     Active Substance: SELEXIPAG
     Dosage: 0.7 MG, BID
     Route: 048
     Dates: start: 20171019, end: 20180110
  25. ADCIRCA [Suspect]
     Active Substance: TADALAFIL
     Dosage: 31 MG, DAILY
     Route: 065
  26. UPTRAVI [Suspect]
     Active Substance: SELEXIPAG
     Dosage: 0.665 MG, DAILY
     Route: 048
     Dates: start: 20170713, end: 20170809
  27. UPTRAVI [Suspect]
     Active Substance: SELEXIPAG
     Dosage: 0.7 MG, DAILY
     Route: 048
     Dates: start: 20170810, end: 20171004
  28. UPTRAVI [Suspect]
     Active Substance: SELEXIPAG
     Dosage: 0.85 MG, BID
     Route: 048
     Dates: start: 20180405
  29. UPTRAVI [Suspect]
     Active Substance: SELEXIPAG
     Dosage: 0.95 MG, BID
     Route: 048
     Dates: start: 20190124
  30. OPSUMIT [Suspect]
     Active Substance: MACITENTAN
     Dosage: 4.7 MG, DAILY
     Route: 048
     Dates: start: 20170608, end: 20170628
  31. ADCIRCA [Suspect]
     Active Substance: TADALAFIL
     Dosage: 26 MG, DAILY
     Route: 065
     Dates: start: 20170921
  32. UPTRAVI [Suspect]
     Active Substance: SELEXIPAG
     Dosage: 0.12 MG, BID
     Route: 048
     Dates: start: 20170508, end: 20170514
  33. UPTRAVI [Suspect]
     Active Substance: SELEXIPAG
     Dosage: 0.9 MG, BID
     Route: 048
     Dates: start: 20180621
  34. OPSUMIT [Suspect]
     Active Substance: MACITENTAN
     Indication: PULMONARY ARTERIAL HYPERTENSION
     Dosage: 2 MG, DAILY
     Route: 048
     Dates: start: 20170403
  35. OPSUMIT [Suspect]
     Active Substance: MACITENTAN
     Dosage: 5 MG, DAILY
     Route: 048
     Dates: start: 20170629, end: 20170920
  36. UPTRAVI [Suspect]
     Active Substance: SELEXIPAG
     Dosage: 0.20 MG, BID
     Route: 048
     Dates: start: 20170515, end: 20170521
  37. UPTRAVI [Suspect]
     Active Substance: SELEXIPAG
     Dosage: 0.9 MG, BID
     Route: 048
     Dates: start: 20181220
  38. UPTRAVI [Suspect]
     Active Substance: SELEXIPAG
     Dosage: 0.1 MG, DAILY
     Route: 048
     Dates: start: 20190412, end: 20190418
  39. EPOPROSTENOL. [Suspect]
     Active Substance: EPOPROSTENOL
     Dosage: 25.2?216 UG, DAILY
     Route: 042
     Dates: start: 20190314

REACTIONS (15)
  - Epistaxis [Recovering/Resolving]
  - Syncope [Recovering/Resolving]
  - Syncope [Recovering/Resolving]
  - Epistaxis [Recovering/Resolving]
  - Nausea [Recovering/Resolving]
  - Pulmonary arterial hypertension [Unknown]
  - Nausea [Recovered/Resolved]
  - Epistaxis [Recovered/Resolved]
  - Epistaxis [Recovering/Resolving]
  - Headache [Recovering/Resolving]
  - Arthralgia [Recovered/Resolved]
  - Epistaxis [Recovering/Resolving]
  - Pain in extremity [Recovered/Resolved]
  - Headache [Recovering/Resolving]
  - Headache [Recovered/Resolved]

NARRATIVE: CASE EVENT DATE: 20170517
